FAERS Safety Report 5471579-6 (Version None)
Quarter: 2007Q3

REPORT INFORMATION
  Report Type: 
  Country: None (occurrence: None)
  Receive Date: 20070928
  Receipt Date: 20070216
  Transmission Date: 20080115
  Serious: Yes (Hospitalization)
  Sender: FDA-Public Use
  Company Number: US-BRISTOL-MYERS SQUIBB COMPANY-13652870

PATIENT
  Age: 80 Year
  Sex: Female
  Weight: 113 kg

DRUGS (7)
  1. DEFINITY [Suspect]
     Indication: ECHOCARDIOGRAM
     Dosage: DEFINITY 1.5CC DILUTED IN 5CC NORMAL SALINE. (3CC DILUTED DEFINITY)
     Route: 042
     Dates: start: 20070123, end: 20070123
  2. HYDRALAZINE HCL [Concomitant]
     Dosage: 10-20 MG PRN
     Route: 040
  3. DOCUSATE SODIUM [Concomitant]
     Route: 048
  4. FERROUS SULFATE TAB [Concomitant]
     Route: 048
  5. DEXTROSE 5% [Concomitant]
     Route: 041
  6. HYDROMORPHONE HCL [Concomitant]
     Route: 040
  7. GRANISETRON HCL [Concomitant]
     Route: 040

REACTIONS (4)
  - ARTHRALGIA [None]
  - HYPOTENSION [None]
  - HYPOXIA [None]
  - RASH MACULAR [None]
